FAERS Safety Report 20290313 (Version 5)
Quarter: 2023Q2

REPORT INFORMATION
  Report Type: Other
  Country: US (occurrence: None)
  Receive Date: 20220104
  Receipt Date: 20230523
  Transmission Date: 20230721
  Serious: Yes (Hospitalization)
  Sender: FDA-Public Use
  Company Number: US-ROCHE-2992782

PATIENT
  Age: 75 Year
  Sex: Male
  Weight: 73.028 kg

DRUGS (29)
  1. COTELLIC [Suspect]
     Active Substance: COBIMETINIB
     Indication: Brain neoplasm malignant
     Dosage: FOR 21 DAYS THEN 7 DAYS OFF
     Route: 048
  2. COTELLIC [Suspect]
     Active Substance: COBIMETINIB
     Indication: Sinus arrest
  3. COTELLIC [Suspect]
     Active Substance: COBIMETINIB
     Indication: Neovascular age-related macular degeneration
  4. COTELLIC [Suspect]
     Active Substance: COBIMETINIB
     Indication: Traumatic fracture
  5. COTELLIC [Suspect]
     Active Substance: COBIMETINIB
     Indication: Fall
  6. COTELLIC [Suspect]
     Active Substance: COBIMETINIB
     Indication: Hypothyroidism
  7. COTELLIC [Suspect]
     Active Substance: COBIMETINIB
     Indication: Malignant melanoma
  8. COTELLIC [Suspect]
     Active Substance: COBIMETINIB
     Indication: Metastases to lung
  9. ZELBORAF [Suspect]
     Active Substance: VEMURAFENIB
     Indication: Brain neoplasm malignant
     Dosage: TAKE 3 TABLET(S) BY MOUTH EVERY DAY FOR 21 DAYS THEN 7 DAYS OFF
     Route: 048
  10. ZELBORAF [Suspect]
     Active Substance: VEMURAFENIB
     Indication: Sinus arrest
     Dosage: TAKE 4 TABLET(S) BY MOUTH 2 TIMES EVERY DAY FOR 28 DAYS
     Route: 048
  11. ZELBORAF [Suspect]
     Active Substance: VEMURAFENIB
     Indication: Neovascular age-related macular degeneration
     Dosage: 4 TABLETS BY MOUTH EVERY 12 HRS
     Route: 048
  12. ZELBORAF [Suspect]
     Active Substance: VEMURAFENIB
     Indication: Traumatic fracture
  13. ZELBORAF [Suspect]
     Active Substance: VEMURAFENIB
     Indication: Fall
  14. ZELBORAF [Suspect]
     Active Substance: VEMURAFENIB
     Indication: Hypothyroidism
  15. ZELBORAF [Suspect]
     Active Substance: VEMURAFENIB
     Indication: Malignant melanoma
  16. ZELBORAF [Suspect]
     Active Substance: VEMURAFENIB
     Indication: Metastases to lung
  17. OXYBUTYNIN [Concomitant]
     Active Substance: OXYBUTYNIN
     Route: 048
  18. ACETAMINOPHEN [Concomitant]
     Active Substance: ACETAMINOPHEN
     Route: 048
  19. PRAVASTATIN [Concomitant]
     Active Substance: PRAVASTATIN
     Route: 048
  20. FUROSEMIDE [Concomitant]
     Active Substance: FUROSEMIDE
     Route: 048
  21. AMLODIPINE [Concomitant]
     Active Substance: AMLODIPINE BESYLATE
     Route: 048
  22. ALLOPURINOL [Concomitant]
     Active Substance: ALLOPURINOL
     Route: 048
  23. BENADRYL [Concomitant]
     Active Substance: DIPHENHYDRAMINE HYDROCHLORIDE
     Dosage: 1 CAPSULE PO
     Route: 048
  24. OMEPRAZOLE [Concomitant]
     Active Substance: OMEPRAZOLE
     Route: 048
  25. PRAVACHOL [Concomitant]
     Active Substance: PRAVASTATIN SODIUM
     Route: 048
  26. SOLU-MEDROL [Concomitant]
     Active Substance: METHYLPREDNISOLONE SODIUM SUCCINATE
     Route: 042
  27. TYLENOL [Concomitant]
     Active Substance: ACETAMINOPHEN
     Dosage: 2 TABLET PO
     Route: 048
  28. CEFDINIR [Concomitant]
     Active Substance: CEFDINIR
  29. ALFUZOSIN [Concomitant]
     Active Substance: ALFUZOSIN

REACTIONS (2)
  - Urinary tract infection [Unknown]
  - Nausea [Unknown]
